FAERS Safety Report 4883305-X (Version None)
Quarter: 2006Q1

REPORT INFORMATION
  Report Type: 
  Country: None (occurrence: None)
  Receive Date: 20060118
  Receipt Date: 20051031
  Transmission Date: 20060701
  Serious: Yes (Hospitalization)
  Sender: FDA-Public Use
  Company Number: 2005-10-1010

PATIENT
  Age: 46 Year
  Sex: Male
  Weight: 118.2 kg

DRUGS (12)
  1. DYAZIDE [Suspect]
     Indication: DRUG USE FOR UNKNOWN INDICATION
     Route: 048
  2. PEGYLATED INTERFERON ALPHA 2B [Suspect]
     Indication: HEPATITIS C
     Dosage: 90MCG WEEKLY
     Route: 058
     Dates: start: 20050708
  3. REBETOL [Suspect]
     Indication: HEPATITIS C
     Dosage: 1200MG PER DAY
     Route: 048
     Dates: start: 20050708
  4. EFFEXOR [Suspect]
     Indication: DRUG USE FOR UNKNOWN INDICATION
     Route: 065
  5. HYDROCHLOROTHIAZIDE [Concomitant]
     Dosage: 50MG UNKNOWN
     Route: 048
  6. LOPRESSOR [Concomitant]
     Dosage: 50MG UNKNOWN
     Route: 048
  7. LOTENSIN [Concomitant]
     Dosage: 20MG UNKNOWN
     Route: 048
  8. ZYRTEC [Concomitant]
     Dosage: 10MG UNKNOWN
     Route: 048
  9. ASPIRIN [Concomitant]
     Indication: PROPHYLAXIS
     Dosage: 81MG PER DAY
     Route: 048
  10. AMBIEN [Concomitant]
     Indication: SLEEP DISORDER
     Dosage: 10MG AT NIGHT
     Route: 048
     Dates: start: 20050902
  11. DARVOCET-N 100 [Concomitant]
     Indication: PAIN
     Dates: start: 20050808
  12. PROCRIT [Concomitant]
     Dosage: 60000UNIT WEEKLY
     Dates: start: 20050913

REACTIONS (7)
  - BLOOD SODIUM DECREASED [None]
  - DIARRHOEA [None]
  - GASTROENTERITIS VIRAL [None]
  - LETHARGY [None]
  - NAUSEA [None]
  - VISUAL DISTURBANCE [None]
  - VOMITING [None]
